FAERS Safety Report 8437196-0 (Version None)
Quarter: 2012Q2

REPORT INFORMATION
  Report Type: 
  Country: None (occurrence: None)
  Receive Date: 20120614
  Receipt Date: 20120314
  Transmission Date: 20120825
  Serious: Yes (Hospitalization)
  Sender: FDA-Public Use
  Company Number: US-AMGEN-USASP2011049094

PATIENT
  Age: 81 Year
  Sex: Male

DRUGS (3)
  1. CALCIUM [Concomitant]
     Dosage: UNK
  2. XGEVA [Suspect]
     Indication: METASTASES TO BONE
     Dosage: 120 MG, UNK
     Dates: start: 20110101
  3. VITAMIN D [Concomitant]
     Dosage: UNK

REACTIONS (2)
  - HYPOPHOSPHATAEMIA [None]
  - HYPOCALCAEMIA [None]
